FAERS Safety Report 25417726 (Version 1)
Quarter: 2025Q2

REPORT INFORMATION
  Report Type: Spontaneous
  Country: US (occurrence: None)
  Receive Date: 20250609
  Receipt Date: 20250609
  Transmission Date: 20250717
  Serious: Yes (Hospitalization)
  Sender: FDA-CTU
  Company Number: None

PATIENT
  Age: 74 Year
  Sex: Female
  Weight: 105.61 kg

DRUGS (17)
  1. JAKAFI [Suspect]
     Active Substance: RUXOLITINIB
     Indication: Essential thrombocythaemia
     Dosage: FREQUENCY : TWICE A DAY;?
     Route: 048
  2. ACETAMINOPHEN [Concomitant]
     Active Substance: ACETAMINOPHEN
  3. AMIODARONE [Concomitant]
     Active Substance: AMIODARONE
  4. AMLODIPINE BESYLATE [Concomitant]
     Active Substance: AMLODIPINE BESYLATE
  5. ARTIFICIAL TEARS OPHTH SOLN 32ML [Concomitant]
  6. ASPIRIN 81MG EC LOW DOSE TABLETS [Concomitant]
  7. CALCIUM + MAGNESIUM TABLETS [Concomitant]
  8. CARVEDILOL 25MG TABLETS [Concomitant]
  9. GLUCOS/CHOND D/S CAPSULES [Concomitant]
  10. LORATADINE 10MG TABLETS [Concomitant]
  11. ONE-A-DAY WOMENS TABLETS [Concomitant]
  12. PANTOPRAZOLE [Concomitant]
     Active Substance: PANTOPRAZOLE
  13. PRESERVISION AREDS 2 + MLTIVIT CAPS [Concomitant]
  14. TRAZODONE 150MG (HUNDRED-FIFTY) TAB [Concomitant]
  15. VITAMIN C 500MG TABLETS [Concomitant]
  16. VITAMIN D3 1,000 UNIT TABLETS [Concomitant]
  17. ROSUVASTATIN [Concomitant]
     Active Substance: ROSUVASTATIN

REACTIONS (1)
  - Intestinal obstruction [None]

NARRATIVE: CASE EVENT DATE: 20250515
